FAERS Safety Report 23970537 (Version 1)
Quarter: 2024Q2

REPORT INFORMATION
  Report Type: Spontaneous
  Country: US (occurrence: US)
  Receive Date: 20240613
  Receipt Date: 20240613
  Transmission Date: 20240716
  Serious: No
  Sender: FDA-Public Use
  Company Number: US-TEVA-VS-3206409

PATIENT
  Age: 70 Year
  Sex: Female

DRUGS (1)
  1. AUSTEDO XR [Suspect]
     Active Substance: DEUTETRABENAZINE
     Indication: Tardive dyskinesia
     Dosage: 6MG+24MG
     Route: 065

REACTIONS (4)
  - Product dose omission issue [Unknown]
  - Diarrhoea [Unknown]
  - Abdominal discomfort [Unknown]
  - Dyskinesia [Unknown]
